FAERS Safety Report 12598393 (Version 4)
Quarter: 2017Q1

REPORT INFORMATION
  Report Type: Report from Study
  Country: NL (occurrence: NL)
  Receive Date: 20160726
  Receipt Date: 20170206
  Transmission Date: 20170428
  Serious: Yes (Hospitalization)
  Sender: FDA-Public Use
  Company Number: NL-TEVA-679460ISR

PATIENT
  Age: 65 Year
  Sex: Female

DRUGS (15)
  1. DUROGESIC [Concomitant]
     Active Substance: FENTANYL
     Indication: PAIN
     Dosage: 288 MICROGRAM DAILY; DAILY DOSE WAS ALSO REPORTED AS 12 MCG/HR
     Route: 048
     Dates: start: 20160602
  2. PREDNISON [Suspect]
     Active Substance: PREDNISONE
     Indication: NON-HODGKIN^S LYMPHOMA
     Dosage: 100 MILLIGRAM DAILY; LAST ADMINISTRATION DATE BEFORE AE OCCURENCE 16-JUL-2016
     Route: 048
     Dates: start: 20160712, end: 20160716
  3. NITROFURANTOIN. [Concomitant]
     Active Substance: NITROFURANTOIN
     Dosage: 50 MILLIGRAM DAILY;
  4. ASCAL [Concomitant]
     Active Substance: CARBASPIRIN
     Indication: CEREBRAL DISORDER
     Dosage: 80 MILLIEQUIVALENTS DAILY;
     Route: 048
     Dates: start: 20160602
  5. PARACETAMOL [Concomitant]
     Active Substance: ACETAMINOPHEN
     Dosage: 4 GRAM DAILY;
  6. LONQUEX 6MG OPLOSSING VOOR INJECTIE [Suspect]
     Active Substance: LIPEGFILGRASTIM
     Indication: PROPHYLAXIS
     Dosage: 6 MILLIGRAM DAILY; LAST ADMINISTRATION DATE BEFORE AE OCCURENCE 13-JUL-2016
     Route: 058
     Dates: start: 20160713
  7. DOXORUBICINE [Suspect]
     Active Substance: DOXORUBICIN
     Indication: NON-HODGKIN^S LYMPHOMA
     Dosage: 95 MILLIGRAM DAILY; LAST ADMINISTRATION DATE BEFORE AE OCCURENCE 12-JUL-2016
     Route: 042
     Dates: start: 20160712, end: 20160712
  8. RITUXIMAB [Concomitant]
     Active Substance: RITUXIMAB
     Dosage: 720  DAILY;
     Dates: start: 20160712, end: 20160712
  9. MOVICOLON [Concomitant]
     Active Substance: POLYETHYLENE GLYCOL 3350\POTASSIUM CHLORIDE\SODIUM BICARBONATE\SODIUM CHLORIDE
     Indication: PROPHYLAXIS
     Dosage: 1 DOSAGE FORM IS ONE SACHET
     Route: 048
     Dates: start: 20140303
  10. ASASANTIN [Concomitant]
     Active Substance: ASPIRIN\DIPYRIDAMOLE
     Dosage: 2 DOSAGE FORMS DAILY; DOSE: 200/25 MG
  11. OMEPRAZOL [Concomitant]
     Active Substance: OMEPRAZOLE
     Indication: PROPHYLAXIS
     Dosage: 20 MILLIGRAM DAILY;
     Route: 048
     Dates: start: 20160607
  12. VINCRISTINE [Suspect]
     Active Substance: VINCRISTINE
     Indication: NON-HODGKIN^S LYMPHOMA
     Dosage: 2 MILLIGRAM DAILY; LAST ADMINISTRATION DATE BEFORE AE OCCURENCE 12-JUL-2016
     Route: 042
     Dates: start: 20160712, end: 20160712
  13. CYCLOPHOSPHAMIDE. [Suspect]
     Active Substance: CYCLOPHOSPHAMIDE
     Indication: NON-HODGKIN^S LYMPHOMA
     Dosage: 1450 MILLIGRAM DAILY; LAST ADMINISTRATION DATE BEFORE AE OCCURENCE 12-JUL-2016
     Route: 042
     Dates: start: 20160712, end: 20160712
  14. METOCLOPRAMIDE. [Concomitant]
     Active Substance: METOCLOPRAMIDE
     Indication: PROPHYLAXIS
     Dosage: 20 MILLIGRAM DAILY;
     Route: 048
     Dates: start: 20160602
  15. SIMVASTATINE [Concomitant]
     Active Substance: SIMVASTATIN
     Dosage: 40 MILLIGRAM DAILY;

REACTIONS (1)
  - Gastroenteritis [Recovered/Resolved]

NARRATIVE: CASE EVENT DATE: 20160720
